FAERS Safety Report 4930653-0 (Version None)
Quarter: 2006Q1

REPORT INFORMATION
  Report Type: 
  Country: None (occurrence: None)
  Receive Date: 20060302
  Receipt Date: 20060224
  Transmission Date: 20060701
  Serious: Yes (Death, Hospitalization)
  Sender: FDA-Public Use
  Company Number: 2006GB00342

PATIENT
  Age: 71 Year
  Sex: Female
  Weight: 80 kg

DRUGS (7)
  1. PROPOFOL [Suspect]
     Indication: ANAESTHESIA
     Route: 042
  2. SUXAMETHONIUM [Suspect]
     Indication: ANAESTHESIA
     Route: 040
  3. REMIFENTANIL [Suspect]
     Indication: ANAESTHESIA
     Route: 065
  4. THYROXINE SODIUM [Concomitant]
     Indication: HYPOPITUITARISM
     Route: 048
  5. HYDROCORTISONE [Concomitant]
     Indication: HYPOPITUITARISM
     Route: 048
  6. ADRENALINE [Concomitant]
     Route: 065
  7. AMIODARONE [Concomitant]
     Route: 065

REACTIONS (16)
  - ACUTE MYOCARDIAL INFARCTION [None]
  - BRADYCARDIA [None]
  - BUNDLE BRANCH BLOCK LEFT [None]
  - CAVERNOUS SINUS THROMBOSIS [None]
  - ELECTROMECHANICAL DISSOCIATION [None]
  - EYE SWELLING [None]
  - HYPOXIA [None]
  - INFLUENZA LIKE ILLNESS [None]
  - METABOLIC ACIDOSIS [None]
  - NASAL CYST [None]
  - PERICARDIAL HAEMORRHAGE [None]
  - PNEUMONIA [None]
  - PULSE ABNORMAL [None]
  - SINUS BRADYCARDIA [None]
  - VENTRICULAR FAILURE [None]
  - VENTRICULAR FIBRILLATION [None]
